FAERS Safety Report 10389650 (Version 1)
Quarter: 2014Q3

REPORT INFORMATION
  Report Type: Spontaneous
  Country: US (occurrence: None)
  Receive Date: 20140813
  Receipt Date: 20140813
  Transmission Date: 20150326
  Serious: Yes (Other)
  Sender: FDA-Public Use
  Company Number: AUR-APL-2014-08653

PATIENT
  Age: 64 Year
  Sex: Male

DRUGS (5)
  1. ASPIRIN (ACETYLSALICYLIC ACID) [Suspect]
     Active Substance: ASPIRIN
     Indication: PRODUCT USED FOR UNKNOWN INDICATION
  2. EPTIFIBATIDE [Suspect]
     Active Substance: EPTIFIBATIDE
     Indication: PRODUCT USED FOR UNKNOWN INDICATION
  3. NITROGLYCERIN ACC ( GLYCERYL TRINITRATE) [Concomitant]
  4. CLOPIDOGREL (CLOPIDOGREL) UNKNOWN [Suspect]
     Active Substance: CLOPIDOGREL BISULFATE
     Indication: PRODUCT USED FOR UNKNOWN INDICATION
     Dosage: 600 MG, UNK (LOADING DOSE), UNKNOWN
  5. HEPARIN ( HEPARIN) [Concomitant]

REACTIONS (13)
  - Petechiae [None]
  - Thrombosis in device [None]
  - Acute myocardial infarction [None]
  - Arterial restenosis [None]
  - Blood creatinine increased [None]
  - International normalised ratio increased [None]
  - Cardiac arrest [None]
  - Heparin-induced thrombocytopenia [None]
  - Unresponsive to stimuli [None]
  - Drug ineffective [None]
  - Ventricular tachycardia [None]
  - General physical health deterioration [None]
  - Disseminated intravascular coagulation [None]
